FAERS Safety Report 4421952-X (Version None)
Quarter: 2004Q3

REPORT INFORMATION
  Report Type: 
  Country: None (occurrence: None)
  Receive Date: 20040809
  Receipt Date: 20040809
  Transmission Date: 20050211
  Serious: Yes (Other)
  Sender: FDA-Public Use
  Company Number: None

PATIENT
  Age: 72 Year
  Sex: Male
  Weight: 92.9874 kg

DRUGS (1)
  1. BEXTRA [Suspect]
     Indication: ARTHRALGIA
     Dosage: TABLET (1) BY MOUTH PER DAY
     Dates: start: 20040703, end: 20040713

REACTIONS (2)
  - RASH MACULO-PAPULAR [None]
  - URTICARIA GENERALISED [None]
